FAERS Safety Report 12214333 (Version 3)
Quarter: 2018Q3

REPORT INFORMATION
  Report Type: Spontaneous
  Country: US (occurrence: US)
  Receive Date: 20160328
  Receipt Date: 20180828
  Transmission Date: 20181010
  Serious: No
  Sender: FDA-Public Use
  Company Number: US-BRISTOL-MYERS SQUIBB COMPANY-BMS-2016-020479

PATIENT
  Sex: Female

DRUGS (1)
  1. ORENCIA [Suspect]
     Active Substance: ABATACEPT
     Indication: PRODUCT USED FOR UNKNOWN INDICATION
     Dosage: UNK UNK, QWK
     Route: 058

REACTIONS (3)
  - Cystitis [Unknown]
  - Drug dose omission [Unknown]
  - Pain [Unknown]
